FAERS Safety Report 19029625 (Version 7)
Quarter: 2021Q3

REPORT INFORMATION
  Report Type: Report from Study
  Country: None (occurrence: US)
  Receive Date: 20210318
  Receipt Date: 20210909
  Transmission Date: 20211014
  Serious: Yes (Hospitalization, Other)
  Sender: FDA-Public Use
  Company Number: US-ABBVIE-21K-163-3817797-00

PATIENT
  Age: 68 Year
  Sex: Female
  Weight: 48.58 kg

DRUGS (7)
  1. OXYGEN. [Concomitant]
     Active Substance: OXYGEN
     Indication: PRODUCT USED FOR UNKNOWN INDICATION
  2. RINVOQ [Suspect]
     Active Substance: UPADACITINIB
     Indication: RHEUMATOID ARTHRITIS
     Route: 048
     Dates: end: 202103
  3. RINVOQ [Suspect]
     Active Substance: UPADACITINIB
     Route: 048
     Dates: start: 20210321, end: 2021
  4. METHOTREXATE. [Concomitant]
     Active Substance: METHOTREXATE
     Indication: RHEUMATOID ARTHRITIS
  5. FOLIC ACID. [Concomitant]
     Active Substance: FOLIC ACID
     Indication: PRODUCT USED FOR UNKNOWN INDICATION
  6. PFIZER?BIONTECH COVID?19 VACCINE [Suspect]
     Active Substance: TOZINAMERAN
     Indication: COVID-19 IMMUNISATION
     Route: 030
     Dates: start: 20210826, end: 20210826
  7. RINVOQ [Suspect]
     Active Substance: UPADACITINIB
     Route: 048

REACTIONS (14)
  - COVID-19 [Recovering/Resolving]
  - Nerve compression [Unknown]
  - Chronic obstructive pulmonary disease [Unknown]
  - Weight decreased [Recovering/Resolving]
  - Pain in extremity [Unknown]
  - Pneumonia [Unknown]
  - Alopecia [Recovered/Resolved]
  - Nasal herpes [Unknown]
  - Auditory disorder [Recovering/Resolving]
  - Arthralgia [Not Recovered/Not Resolved]
  - Joint swelling [Unknown]
  - Diabetes mellitus [Unknown]
  - Muscle strain [Unknown]
  - Oral herpes [Unknown]

NARRATIVE: CASE EVENT DATE: 20210217
